FAERS Safety Report 20941485 (Version 1)
Quarter: 2022Q2

REPORT INFORMATION
  Report Type: Spontaneous
  Country: CA (occurrence: CA)
  Receive Date: 20220610
  Receipt Date: 20220610
  Transmission Date: 20220721
  Serious: Yes (Hospitalization)
  Sender: FDA-Public Use
  Company Number: None

PATIENT
  Age: 55 Year
  Sex: Female
  Weight: 66 kg

DRUGS (3)
  1. METHOTREXATE [Suspect]
     Active Substance: METHOTREXATE
     Indication: Crohn^s disease
     Dosage: 1 EVERY 1 WEEKS
  2. PENTASA [Suspect]
     Active Substance: MESALAMINE
     Indication: Crohn^s disease
  3. PREDNISONE [Suspect]
     Active Substance: PREDNISONE
     Indication: Crohn^s disease

REACTIONS (5)
  - Condition aggravated [Unknown]
  - Cough [Unknown]
  - Dizziness [Unknown]
  - Treatment failure [Unknown]
  - Off label use [Unknown]
